FAERS Safety Report 8991781 (Version 1)
Quarter: 2012Q4

REPORT INFORMATION
  Report Type: 
  Country: BR (occurrence: BR)
  Receive Date: 20121231
  Receipt Date: 20121231
  Transmission Date: 20130627
  Serious: Yes (Other)
  Sender: FDA-Public Use
  Company Number: BR-JNJFOC-20121213898

PATIENT
  Age: 69 Year
  Sex: Female
  Weight: 65 kg

DRUGS (2)
  1. INVEGA SUSTENNA [Suspect]
     Indication: BIPOLAR DISORDER
     Route: 030
     Dates: start: 201204, end: 20121020
  2. LOTAR [Concomitant]
     Indication: HYPERTENSION
     Route: 065

REACTIONS (2)
  - Major depression [Not Recovered/Not Resolved]
  - Fatigue [Unknown]
